FAERS Safety Report 17624684 (Version 2)
Quarter: 2020Q2

REPORT INFORMATION
  Report Type: Report from Study
  Country: CA (occurrence: CA)
  Receive Date: 20200403
  Receipt Date: 20200428
  Transmission Date: 20200713
  Serious: Yes (Hospitalization, Other)
  Sender: FDA-Public Use
  Company Number: CA-009507513-1810CAN005547

PATIENT
  Sex: Female
  Weight: 60 kg

DRUGS (1)
  1. ZOLINZA [Suspect]
     Active Substance: VORINOSTAT
     Indication: CUTANEOUS T-CELL LYMPHOMA
     Dosage: 4 TABLETS, DAILY
     Route: 048
     Dates: start: 20171213, end: 20190404

REACTIONS (3)
  - Drug ineffective [Unknown]
  - Cutaneous T-cell lymphoma [Recovering/Resolving]
  - Therapy non-responder [Recovering/Resolving]
